FAERS Safety Report 21784755 (Version 1)
Quarter: 2022Q4

REPORT INFORMATION
  Report Type: Spontaneous
  Country: IT (occurrence: IT)
  Receive Date: 20221227
  Receipt Date: 20221227
  Transmission Date: 20230113
  Serious: Yes (Death, Other)
  Sender: FDA-Public Use
  Company Number: IT-OTSUKA-2022_055977

PATIENT
  Age: 70 Year
  Sex: Female
  Weight: 57 kg

DRUGS (16)
  1. DACOGEN [Suspect]
     Active Substance: DECITABINE
     Indication: Acute myeloid leukaemia
     Dosage: 32MG/SQM/DAY INFUSION
     Route: 065
     Dates: start: 20220817, end: 20220821
  2. VENETOCLAX [Suspect]
     Active Substance: VENETOCLAX
     Indication: Acute myeloid leukaemia
     Dosage: 50 MILLIGRAM (50 MG)
     Route: 048
     Dates: start: 20220817, end: 20220914
  3. CYCLOPHOSPHAMIDE [Concomitant]
     Active Substance: CYCLOPHOSPHAMIDE
     Indication: Product used for unknown indication
     Dosage: 2160 MG (40MG/KG) ON THIRD AND FOURTH DAY
     Route: 065
     Dates: start: 20221028, end: 20221029
  4. EMAGEL [Concomitant]
     Indication: Hypotension
     Dosage: UNK
     Route: 065
  5. METHYLPREDNISOLONE [Concomitant]
     Active Substance: METHYLPREDNISOLONE
     Indication: Product used for unknown indication
     Dosage: 40 MG INFUSION
     Route: 065
     Dates: end: 20221103
  6. NOREPINEPHRINE [Concomitant]
     Active Substance: NOREPINEPHRINE
     Indication: Product used for unknown indication
     Dosage: INCREASE TO 30ML / HOUR
     Route: 065
     Dates: end: 20221103
  7. NOREPINEPHRINE [Concomitant]
     Active Substance: NOREPINEPHRINE
     Dosage: INFUSION, 2 VIALS IN FIS 100, 10ML / HOUR
     Route: 065
     Dates: end: 20221103
  8. FLUDARABINE [Concomitant]
     Active Substance: FLUDARABINE PHOSPHATE
     Indication: Allogenic stem cell transplantation
     Dosage: 6 DAYS TO TRASPLANTATION
     Route: 065
  9. TREOSULFAN [Concomitant]
     Active Substance: TREOSULFAN
     Indication: Allogenic stem cell transplantation
     Dosage: 10MG FOR 3DAYS
     Route: 065
  10. EPINEPHRINE [Concomitant]
     Active Substance: EPINEPHRINE
     Indication: Product used for unknown indication
     Dosage: AEROSOL
     Route: 065
     Dates: end: 20221103
  11. CYCLOSPORINE [Concomitant]
     Active Substance: CYCLOSPORINE
     Indication: Allogenic stem cell transplantation
     Dosage: 2MG/KG IN FIS 500 ML FOR 24HOURS
     Route: 065
  12. MYCOPHENOLATE MOFETIL [Concomitant]
     Active Substance: MYCOPHENOLATE MOFETIL
     Indication: Allogenic stem cell transplantation
     Dosage: 15 MG/KG ON FIFTH DAY
     Route: 065
  13. THIOPLEX [Concomitant]
     Active Substance: THIOTEPA
     Indication: Allogenic stem cell transplantation
     Dosage: 5 MG
     Route: 065
  14. DEXCHLORPHENIRAMINE MALEATE [Concomitant]
     Active Substance: DEXCHLORPHENIRAMINE MALEATE
     Indication: Product used for unknown indication
     Dosage: 1/2 VIAL IN FISIOLOGIC SOLUTION INFUSION 100 CC
     Route: 065
     Dates: end: 20221103
  15. HYDROCORTISONE SODIUM SUCCINATE [Concomitant]
     Active Substance: HYDROCORTISONE SODIUM SUCCINATE
     Indication: Product used for unknown indication
     Dosage: 500 MG INFUSION
     Route: 065
     Dates: start: 20221103
  16. HYDROCORTISONE SODIUM SUCCINATE [Concomitant]
     Active Substance: HYDROCORTISONE SODIUM SUCCINATE
     Dosage: 500 CC
     Route: 065

REACTIONS (14)
  - Transfusion-related acute lung injury [Fatal]
  - Klebsiella infection [Fatal]
  - Shock [Unknown]
  - Allogenic stem cell transplantation [Unknown]
  - Multiple organ dysfunction syndrome [Unknown]
  - Anuria [Unknown]
  - Tongue oedema [Unknown]
  - Oxygen saturation abnormal [Unknown]
  - Bronchospasm [Unknown]
  - Oxygen saturation decreased [Unknown]
  - Eye irritation [Unknown]
  - Lip disorder [Unknown]
  - Blood pressure abnormal [Unknown]
  - Hypotension [Unknown]

NARRATIVE: CASE EVENT DATE: 20221103
